FAERS Safety Report 15117115 (Version 1)
Quarter: 2018Q3

REPORT INFORMATION
  Report Type: Spontaneous
  Country: GB (occurrence: GB)
  Receive Date: 20180706
  Receipt Date: 20180706
  Transmission Date: 20181010
  Serious: No
  Sender: FDA-Public Use
  Company Number: GB-B. BRAUN MEDICAL INC.-2051523

PATIENT
  Age: 70 Year
  Sex: Male

DRUGS (2)
  1. DUODOPA [Suspect]
     Active Substance: CARBIDOPA\LEVODOPA
     Route: 050
  2. METRONIDAZOLE INJECTION USP (5 MG/ML) IN PAB? PLASTIC CONTAINER [Suspect]
     Active Substance: METRONIDAZOLE
     Indication: STOMA SITE INFECTION
     Route: 065

REACTIONS (10)
  - Gait disturbance [Unknown]
  - Stoma site infection [None]
  - Stoma site discharge [None]
  - Stoma site discomfort [None]
  - Stoma site erythema [None]
  - Mobility decreased [Unknown]
  - Paraesthesia [Unknown]
  - Stoma site haemorrhage [None]
  - Wrong technique in device usage process [None]
  - Stoma site pain [None]
